FAERS Safety Report 25498194 (Version 1)
Quarter: 2025Q3

REPORT INFORMATION
  Report Type: Spontaneous
  Country: US (occurrence: US)
  Receive Date: 20250701
  Receipt Date: 20250701
  Transmission Date: 20251021
  Serious: No
  Sender: Haleon PLC
  Company Number: US-HALEON-2249953

PATIENT

DRUGS (1)
  1. ADVIL PM (DIPHENHYDRAMINE HYDROCHLORIDE\IBUPROFEN) [Suspect]
     Active Substance: DIPHENHYDRAMINE HYDROCHLORIDE\IBUPROFEN
     Indication: Product used for unknown indication

REACTIONS (1)
  - Somnolence [Unknown]
